FAERS Safety Report 7693057-6 (Version None)
Quarter: 2011Q3

REPORT INFORMATION
  Report Type: 
  Country: None (occurrence: None)
  Receive Date: 20110819
  Receipt Date: 20110817
  Transmission Date: 20111222
  Serious: Yes (Hospitalization, Other)
  Sender: FDA-Public Use
  Company Number: US-PFIZER INC-2011118743

PATIENT
  Sex: Male

DRUGS (3)
  1. TEMAZEPAM [Concomitant]
     Indication: INSOMNIA
     Dosage: UNK
     Dates: start: 20090701, end: 20090901
  2. VIAGRA [Concomitant]
     Dosage: UNK
     Dates: start: 20060101
  3. CHANTIX [Suspect]
     Indication: SMOKING CESSATION THERAPY
     Dosage: UNK
     Dates: start: 20090701, end: 20090801

REACTIONS (3)
  - ABNORMAL DREAMS [None]
  - SUICIDE ATTEMPT [None]
  - DEPRESSION [None]
